FAERS Safety Report 19076381 (Version 1)
Quarter: 2021Q1

REPORT INFORMATION
  Report Type: Report from Study
  Country: None (occurrence: US)
  Receive Date: 20210330
  Receipt Date: 20210330
  Transmission Date: 20210420
  Serious: Yes (Other)
  Sender: FDA-Public Use
  Company Number: US-ABBVIE-19K-163-3135613-00

PATIENT
  Sex: Female
  Weight: 77.18 kg

DRUGS (3)
  1. OBINUTUZUMAB. [Suspect]
     Active Substance: OBINUTUZUMAB
     Indication: PRODUCT USED FOR UNKNOWN INDICATION
     Route: 065
  2. IMBRUVICA [Suspect]
     Active Substance: IBRUTINIB
     Indication: LYMPHOCYTIC LEUKAEMIA
     Route: 048
     Dates: start: 20190219
  3. IMBRUVICA [Suspect]
     Active Substance: IBRUTINIB
     Indication: CHRONIC LYMPHOCYTIC LEUKAEMIA
     Route: 048

REACTIONS (21)
  - Pain in extremity [Not Recovered/Not Resolved]
  - Skin fissures [Not Recovered/Not Resolved]
  - Sinus congestion [Unknown]
  - Herpes zoster [Not Recovered/Not Resolved]
  - Pain [Unknown]
  - Respiratory disorder [Not Recovered/Not Resolved]
  - Dizziness [Recovered/Resolved]
  - Ear infection staphylococcal [Not Recovered/Not Resolved]
  - Diarrhoea [Unknown]
  - Adverse drug reaction [Unknown]
  - Alcohol intolerance [Not Recovered/Not Resolved]
  - Memory impairment [Unknown]
  - Muscle spasms [Not Recovered/Not Resolved]
  - Onychoclasis [Unknown]
  - Atrioventricular block [Unknown]
  - Hypoaesthesia [Not Recovered/Not Resolved]
  - Skin ulcer [Not Recovered/Not Resolved]
  - Nasopharyngitis [Unknown]
  - Fatigue [Recovering/Resolving]
  - Pain [Recovered/Resolved]
  - Cough [Not Recovered/Not Resolved]

NARRATIVE: CASE EVENT DATE: 2019
